FAERS Safety Report 6390654-5 (Version None)
Quarter: 2009Q4

REPORT INFORMATION
  Report Type: 
  Country: None (occurrence: None)
  Receive Date: 20091003
  Receipt Date: 20090923
  Transmission Date: 20100525
  Serious: Yes (Hospitalization)
  Sender: FDA-Public Use
  Company Number: 060002L09TWN

PATIENT
  Age: 29 Year
  Sex: Female

DRUGS (3)
  1. CLOMIPHENE CITRATE [Suspect]
     Indication: OVULATION INDUCTION
  2. CHORIONIC GONADOTROPIN (CHORIONIC GONADOTROPHIN) [Suspect]
     Indication: OVULATION INDUCTION
  3. GONADOTROPINS [Concomitant]

REACTIONS (7)
  - ABDOMINAL PAIN LOWER [None]
  - CAESAREAN SECTION [None]
  - DRUG EXPOSURE DURING PREGNANCY [None]
  - HAEMORRHAGE [None]
  - HETEROTOPIC PREGNANCY [None]
  - OVARIAN CYST [None]
  - PREMATURE LABOUR [None]
